FAERS Safety Report 5383215-8 (Version None)
Quarter: 2007Q3

REPORT INFORMATION
  Report Type: 
  Country: None (occurrence: None)
  Receive Date: 20070710
  Receipt Date: 20070628
  Transmission Date: 20080115
  Serious: Yes (Hospitalization)
  Sender: FDA-Public Use
  Company Number: GB-PFIZER INC-2007054283

PATIENT
  Age: 73 Year
  Sex: Female
  Weight: 53.9 kg

DRUGS (7)
  1. GLIPIZIDE [Suspect]
     Route: 048
  2. PERINDOPRIL ERBUMINE [Suspect]
     Indication: BLOOD PRESSURE INCREASED
     Route: 048
  3. METFORMIN [Suspect]
     Indication: TYPE 2 DIABETES MELLITUS
     Route: 048
  4. AMLODIPINE [Concomitant]
     Indication: HYPERTENSION
     Dosage: DAILY DOSE:10MG
     Route: 048
  5. ASPIRIN [Concomitant]
     Indication: ANTICOAGULANT THERAPY
     Dosage: DAILY DOSE:75MG
     Route: 048
  6. OMEPRAZOLE [Concomitant]
     Dosage: DAILY DOSE:20MG
     Route: 048
  7. PRAVASTATIN [Concomitant]
     Indication: HYPERCHOLESTEROLAEMIA
     Dosage: DAILY DOSE:40MG
     Route: 048

REACTIONS (2)
  - LACTIC ACIDOSIS [None]
  - RENAL FAILURE ACUTE [None]
